FAERS Safety Report 6402424-X (Version None)
Quarter: 2009Q4

REPORT INFORMATION
  Report Type: 
  Country: None (occurrence: None)
  Receive Date: 20091015
  Receipt Date: 20091007
  Transmission Date: 20100525
  Serious: Yes (Hospitalization)
  Sender: FDA-Public Use
  Company Number: IE-ABBOTT-08P-229-0480145-00

PATIENT
  Sex: Female

DRUGS (7)
  1. EPILIM [Suspect]
     Indication: CONVULSION
     Route: 048
     Dates: start: 20080714
  2. EPILIM [Suspect]
     Indication: AGITATION
  3. GABAPENTIN [Suspect]
     Indication: CONVULSION
     Route: 048
     Dates: start: 20080714
  4. GABAPENTIN [Suspect]
     Indication: AGITATION
  5. CHLORAL HYDRATE [Suspect]
     Indication: CONVULSION
     Route: 048
     Dates: start: 20080714
  6. CHLORAL HYDRATE [Suspect]
     Indication: AGITATION
  7. INNOHEP 3500 [Concomitant]
     Indication: DRUG USE FOR UNKNOWN INDICATION
     Route: 065

REACTIONS (4)
  - DRUG RASH WITH EOSINOPHILIA AND SYSTEMIC SYMPTOMS [None]
  - EOSINOPHILIA [None]
  - HEPATIC FAILURE [None]
  - RASH [None]
